FAERS Safety Report 5900640-4 (Version None)
Quarter: 2008Q3

REPORT INFORMATION
  Report Type: 
  Country: None (occurrence: None)
  Receive Date: 20080926
  Receipt Date: 20080916
  Transmission Date: 20090109
  Serious: Yes (Other)
  Sender: FDA-Public Use
  Company Number: JP-PFIZER INC-2008078802

PATIENT
  Sex: Male

DRUGS (1)
  1. UNASYN [Suspect]
     Dosage: DAILY DOSE:6GRAM
     Route: 042

REACTIONS (1)
  - RENAL IMPAIRMENT [None]
